FAERS Safety Report 7278107-3 (Version None)
Quarter: 2010Q4

REPORT INFORMATION
  Report Type: 
  Country: None (occurrence: None)
  Receive Date: 20101206
  Receipt Date: 20101025
  Transmission Date: 20110411
  Serious: No
  Sender: FDA-Public Use
  Company Number: 2010SP057006

PATIENT
  Age: 30 Year
  Sex: Female

DRUGS (2)
  1. SAPHRIS [Suspect]
     Indication: AFFECTIVE DISORDER
     Dosage: 10 MG;QD;SL, 5 MG;QD; 2.5 MG;QD
     Route: 060
     Dates: start: 20100901
  2. INVEGA [Concomitant]

REACTIONS (5)
  - AFFECTIVE DISORDER [None]
  - DEPRESSION [None]
  - INAPPROPRIATE SCHEDULE OF DRUG ADMINISTRATION [None]
  - MILD MENTAL RETARDATION [None]
  - UNDERDOSE [None]
